FAERS Safety Report 17139767 (Version 2)
Quarter: 2019Q4

REPORT INFORMATION
  Report Type: Spontaneous
  Country: IT (occurrence: IT)
  Receive Date: 20191211
  Receipt Date: 20191216
  Transmission Date: 20200122
  Serious: Yes (Hospitalization)
  Sender: FDA-Public Use
  Company Number: IT-MYLANLABS-2019M1122031

PATIENT
  Age: 82 Year
  Sex: Female

DRUGS (10)
  1. BISOPROLOL [Suspect]
     Active Substance: BISOPROLOL
     Indication: ACUTE CORONARY SYNDROME
     Dosage: 2.5 MILLIGRAM, QD
     Route: 048
  2. LASIX [Suspect]
     Active Substance: FUROSEMIDE
     Indication: ACUTE CORONARY SYNDROME
     Dosage: 25 MILLIGRAM, QD
     Route: 048
  3. TICAGRELOR. [Concomitant]
     Active Substance: TICAGRELOR
     Dosage: 180 MILLIGRAM
  4. MINIAS [Concomitant]
     Active Substance: LORMETAZEPAM
     Dosage: UNK
  5. PANTORC [Concomitant]
     Active Substance: PANTOPRAZOLE SODIUM
     Dosage: 20 MILLIGRAM
  6. ACETYLSALICYLIC ACID [Concomitant]
     Active Substance: ASPIRIN
     Dosage: 75 MILLIGRAM
  7. LUVION                             /00252501/ [Suspect]
     Active Substance: CANRENOIC ACID
     Indication: ACUTE CORONARY SYNDROME
     Dosage: 50 MILLIGRAM, QD
     Route: 048
  8. TORVAST [Concomitant]
     Active Substance: ATORVASTATIN
     Dosage: 80 MILLIGRAM
  9. CORLENTOR [Suspect]
     Active Substance: IVABRADINE HYDROCHLORIDE
     Indication: ACUTE CORONARY SYNDROME
     Dosage: 10 MILLIGRAM, QD
     Route: 048
  10. KARVEZIDE [Concomitant]
     Active Substance: HYDROCHLOROTHIAZIDE\IRBESARTAN
     Dosage: 150 MILLIGRAM

REACTIONS (3)
  - Hyponatraemia [Recovered/Resolved]
  - Syncope [Recovered/Resolved]
  - Bradycardia [Recovered/Resolved]

NARRATIVE: CASE EVENT DATE: 20190701
